FAERS Safety Report 9309737 (Version 1)
Quarter: 2013Q2

REPORT INFORMATION
  Report Type: Spontaneous
  Country: US (occurrence: US)
  Receive Date: 20130525
  Receipt Date: 20130525
  Transmission Date: 20140414
  Serious: Yes (Other)
  Sender: FDA-Public Use
  Company Number: US-BRISTOL-MYERS SQUIBB COMPANY-18737684

PATIENT
  Age: 56 Year
  Sex: Male

DRUGS (5)
  1. BYDUREON [Suspect]
     Indication: TYPE 2 DIABETES MELLITUS
     Route: 058
     Dates: start: 201303
  2. BENICAR [Concomitant]
     Route: 048
  3. ACTOS [Concomitant]
     Route: 048
  4. FISH OIL [Concomitant]
     Route: 048
  5. BABY ASPIRIN [Concomitant]
     Route: 048

REACTIONS (4)
  - Pancreatic neoplasm [Unknown]
  - Pancreatitis [Unknown]
  - Cholelithiasis [Unknown]
  - Metastases to liver [Unknown]
